FAERS Safety Report 6715308-4 (Version None)
Quarter: 2010Q2

REPORT INFORMATION
  Report Type: 
  Country: None (occurrence: None)
  Receive Date: 20100507
  Receipt Date: 20100507
  Transmission Date: 20101027
  Serious: Yes (Other)
  Sender: FDA-Public Use
  Company Number: None

PATIENT
  Sex: Female
  Weight: 8.2 kg

DRUGS (2)
  1. INFANT TYLENOL 80MG PER 0.8ML MCNEIL CONSUMER HEALTHCARE [Suspect]
     Indication: PYREXIA
     Dosage: 0.4ML 7-8 HOURS
     Dates: start: 20100415, end: 20100418
  2. INFANT TYLENOL 80MG PER 0.8ML MCNEIL CONSUMER HEALTHCARE [Suspect]
     Indication: PYREXIA
     Dosage: 0.4ML 7-8 HOURS
     Dates: start: 20100426, end: 20100430

REACTIONS (3)
  - DIARRHOEA [None]
  - PYREXIA [None]
  - VOMITING [None]
